FAERS Safety Report 19897209 (Version 3)
Quarter: 2022Q1

REPORT INFORMATION
  Report Type: Spontaneous
  Country: US (occurrence: US)
  Receive Date: 20210930
  Receipt Date: 20220324
  Transmission Date: 20220423
  Serious: No
  Sender: FDA-Public Use
  Company Number: US-BRISTOL-MYERS SQUIBB COMPANY-BMS-2021-099583

PATIENT
  Sex: Female

DRUGS (6)
  1. OPDIVO [Suspect]
     Active Substance: NIVOLUMAB
     Indication: Metastases to bone
     Route: 042
  2. OPDIVO [Suspect]
     Active Substance: NIVOLUMAB
     Indication: Metastases to bone marrow
  3. CABOMETYX [Suspect]
     Active Substance: CABOZANTINIB S-MALATE
     Indication: Metastases to bone
     Route: 065
     Dates: start: 202105
  4. CABOMETYX [Suspect]
     Active Substance: CABOZANTINIB S-MALATE
     Indication: Metastases to bone marrow
     Dosage: 20 MG
     Route: 065
  5. NIVOLUMAB\RELATLIMAB-RMBW [Suspect]
     Active Substance: NIVOLUMAB\RELATLIMAB-RMBW
     Indication: Metastases to bone
     Route: 042
  6. NIVOLUMAB\RELATLIMAB-RMBW [Suspect]
     Active Substance: NIVOLUMAB\RELATLIMAB-RMBW
     Indication: Metastases to bone marrow

REACTIONS (12)
  - Peripheral swelling [Recovering/Resolving]
  - Skin depigmentation [Recovered/Resolved]
  - Erythema [Recovered/Resolved]
  - Taste disorder [Unknown]
  - Rash [Recovered/Resolved]
  - Stomatitis [Unknown]
  - Decreased appetite [Not Recovered/Not Resolved]
  - Nausea [Not Recovered/Not Resolved]
  - Vomiting [Not Recovered/Not Resolved]
  - Pain in extremity [Recovered/Resolved]
  - Product dose omission issue [Unknown]
  - Intentional product use issue [Unknown]
